FAERS Safety Report 8360202-9 (Version None)
Quarter: 2012Q2

REPORT INFORMATION
  Report Type: 
  Country: None (occurrence: None)
  Receive Date: 20120515
  Receipt Date: 20120430
  Transmission Date: 20120825
  Serious: Yes (Hospitalization)
  Sender: FDA-Public Use
  Company Number: SE-TEVA-336626ISR

PATIENT
  Sex: Male

DRUGS (8)
  1. CALCIUM ANTAGONISTS [Concomitant]
  2. ASPIRIN [Concomitant]
  3. AMLODIPINE BESYLATE [Suspect]
  4. NITROGLYCERIN [Suspect]
  5. NOVOLOG [Suspect]
     Indication: TYPE 2 DIABETES MELLITUS
  6. RAMIPRIL [Suspect]
  7. SAXAGLIPTIN/PLACEBO [Suspect]
     Indication: TYPE 2 DIABETES MELLITUS
     Dates: start: 20110408
  8. METOPROLOL TARTRATE [Suspect]

REACTIONS (2)
  - PNEUMONIA [None]
  - SYNCOPE [None]
